FAERS Safety Report 10232097 (Version 1)
Quarter: 2014Q2

REPORT INFORMATION
  Report Type: Spontaneous
  Country: US (occurrence: US)
  Receive Date: 20140612
  Receipt Date: 20140612
  Transmission Date: 20141212
  Serious: No
  Sender: FDA-Public Use
  Company Number: US-BIOGENIDEC-2014BI050661

PATIENT
  Age: 39 Year
  Sex: Female

DRUGS (4)
  1. TECFIDERA [Suspect]
     Indication: MULTIPLE SCLEROSIS
     Dates: start: 20140508
  2. SOLUMEDROL [Concomitant]
     Indication: HYPOAESTHESIA
     Route: 042
     Dates: start: 20140505
  3. SOLUMEDROL [Concomitant]
     Indication: PARAESTHESIA
     Route: 042
     Dates: start: 20140505
  4. SOLUMEDROL [Concomitant]
     Indication: PARAESTHESIA
     Route: 042
     Dates: start: 20140505

REACTIONS (3)
  - Flatulence [Not Recovered/Not Resolved]
  - Constipation [Not Recovered/Not Resolved]
  - Flushing [Not Recovered/Not Resolved]
